FAERS Safety Report 5412354-8 (Version None)
Quarter: 2007Q3

REPORT INFORMATION
  Report Type: 
  Country: None (occurrence: None)
  Receive Date: 20070713
  Receipt Date: 20070423
  Transmission Date: 20080115
  Serious: No
  Sender: FDA-Public Use
  Company Number: 2007SP001454

PATIENT
  Age: 64 Year
  Sex: Female
  Weight: 84.8226 kg

DRUGS (5)
  1. LUNESTA [Suspect]
     Indication: INSOMNIA
     Dosage: 2 MG;HS;ORAL
     Route: 048
     Dates: start: 20050501
  2. DIPHENHYDRAMINE HCL [Concomitant]
  3. PREVACID [Concomitant]
  4. LEVOXYL [Concomitant]
  5. ANASTROZOLE [Concomitant]

REACTIONS (1)
  - DRUG EFFECT DECREASED [None]
